FAERS Safety Report 12998707 (Version 1)
Quarter: 2016Q4

REPORT INFORMATION
  Report Type: Spontaneous
  Country: SE (occurrence: SE)
  Receive Date: 20161205
  Receipt Date: 20161205
  Transmission Date: 20170207
  Serious: Yes (Hospitalization, Other)
  Sender: FDA-Public Use
  Company Number: SE-PFIZER INC-2016555314

PATIENT
  Age: 30 Year
  Sex: Female
  Weight: 54 kg

DRUGS (3)
  1. XANOR [Suspect]
     Active Substance: ALPRAZOLAM
     Dosage: ^ 5 PIECES^
     Dates: start: 20140104, end: 20140104
  2. IMOVANE [Suspect]
     Active Substance: ZOPICLONE
     Dosage: ^10 PIECES^
     Dates: start: 20140104, end: 20140104
  3. ALVEDON [Suspect]
     Active Substance: ACETAMINOPHEN
     Dosage: ^ 100 PIECES^
     Dates: start: 20140104, end: 20140104

REACTIONS (5)
  - Intentional self-injury [Recovered/Resolved]
  - Intentional overdose [Recovered/Resolved]
  - White blood cell count increased [Unknown]
  - Toxicity to various agents [Recovered/Resolved]
  - Analgesic drug level increased [Unknown]

NARRATIVE: CASE EVENT DATE: 20140104
